FAERS Safety Report 19730039 (Version 2)
Quarter: 2021Q3

REPORT INFORMATION
  Report Type: Spontaneous
  Country: JP (occurrence: JP)
  Receive Date: 20210820
  Receipt Date: 20210910
  Transmission Date: 20211014
  Serious: Yes (Hospitalization)
  Sender: FDA-Public Use
  Company Number: JP-ALLERGAN-2129246US

PATIENT
  Sex: Female

DRUGS (1)
  1. ASENAPINE MALEATE ? BP [Suspect]
     Active Substance: ASENAPINE MALEATE
     Indication: PRODUCT USED FOR UNKNOWN INDICATION
     Route: 060

REACTIONS (4)
  - Hyperglycaemia [Recovering/Resolving]
  - Hypernatraemia [Recovering/Resolving]
  - Nephrogenic diabetes insipidus [Unknown]
  - Pyelonephritis [Unknown]
